FAERS Safety Report 21758558 (Version 1)
Quarter: 2022Q4

REPORT INFORMATION
  Report Type: Spontaneous
  Country: JP (occurrence: JP)
  Receive Date: 20221221
  Receipt Date: 20221221
  Transmission Date: 20230113
  Serious: Yes (Other)
  Sender: FDA-Public Use
  Company Number: JP-JNJFOC-20221244564

PATIENT
  Age: 15 Year
  Sex: Female
  Weight: 48 kg

DRUGS (5)
  1. TRABECTEDIN [Suspect]
     Active Substance: TRABECTEDIN
     Indication: Rhabdomyosarcoma
     Dosage: 1 MG/BODY
     Route: 041
     Dates: start: 20220915
  2. TRABECTEDIN [Suspect]
     Active Substance: TRABECTEDIN
     Dosage: 1.25 MG/BODY
     Route: 041
     Dates: start: 20221011
  3. ALOXI [Suspect]
     Active Substance: PALONOSETRON HYDROCHLORIDE
     Indication: Prophylaxis of nausea and vomiting
     Route: 042
     Dates: start: 20220915, end: 20220915
  4. ALOXI [Suspect]
     Active Substance: PALONOSETRON HYDROCHLORIDE
     Route: 042
     Dates: start: 20221011, end: 20221011
  5. METOCLOPRAMIDE [Concomitant]
     Active Substance: METOCLOPRAMIDE

REACTIONS (1)
  - Pancytopenia [Recovering/Resolving]

NARRATIVE: CASE EVENT DATE: 20221003
